FAERS Safety Report 16044157 (Version 9)
Quarter: 2019Q2

REPORT INFORMATION
  Report Type: Report from Study
  Country: US (occurrence: US)
  Receive Date: 20190306
  Receipt Date: 20190628
  Transmission Date: 20190711
  Serious: Yes (Hospitalization)
  Sender: FDA-Public Use
  Company Number: US-ACTELION-A-NJ2019-187228

PATIENT
  Age: 37 Year
  Sex: Female
  Weight: 61.68 kg

DRUGS (12)
  1. VELETRI [Suspect]
     Active Substance: EPOPROSTENOL
     Indication: PULMONARY HYPERTENSION
     Dosage: 12.8 NG/KG, PER MIN
     Route: 042
  2. SPIRONOLACTONE. [Concomitant]
     Active Substance: SPIRONOLACTONE
  3. OFLOXACIN. [Concomitant]
     Active Substance: OFLOXACIN
  4. AZATHIOPRINE. [Concomitant]
     Active Substance: AZATHIOPRINE
     Dosage: 50 MG, QD
     Dates: start: 2017
  5. ADEMPAS [Concomitant]
     Active Substance: RIOCIGUAT
     Dosage: 1.5 MG, TID
     Dates: start: 201902
  6. OPSUMIT [Suspect]
     Active Substance: MACITENTAN
     Indication: PULMONARY HYPERTENSION
     Dosage: 10 MG, QD
     Route: 048
     Dates: start: 20190131
  7. VITAMIN D [Concomitant]
     Active Substance: VITAMIN D NOS
  8. METRONIDAZOLE. [Concomitant]
     Active Substance: METRONIDAZOLE
  9. FOLIC ACID. [Concomitant]
     Active Substance: FOLIC ACID
     Dosage: 13.2 NG/KG, PER MIN
     Route: 042
  10. VELETRI [Suspect]
     Active Substance: EPOPROSTENOL
     Dosage: 13.2 NG/KG, PER MIN
     Route: 042
  11. PREDNISONE. [Concomitant]
     Active Substance: PREDNISONE
  12. DIGOXIN. [Concomitant]
     Active Substance: DIGOXIN

REACTIONS (21)
  - Syringe issue [Recovered/Resolved]
  - Catheter site rash [Unknown]
  - Headache [Not Recovered/Not Resolved]
  - Device dislocation [Unknown]
  - Fatigue [Unknown]
  - Ear discomfort [Not Recovered/Not Resolved]
  - Eye infection [Unknown]
  - Abdominal distension [Not Recovered/Not Resolved]
  - Oedema [Not Recovered/Not Resolved]
  - Skin irritation [Unknown]
  - Diarrhoea [Recovered/Resolved]
  - Gait disturbance [Not Recovered/Not Resolved]
  - Pruritus [Not Recovered/Not Resolved]
  - Vomiting [Unknown]
  - Peripheral swelling [Not Recovered/Not Resolved]
  - Chromaturia [Not Recovered/Not Resolved]
  - Pain in jaw [Unknown]
  - Product leakage [Unknown]
  - Catheter site pruritus [Unknown]
  - Dizziness [Recovered/Resolved]
  - Pain in extremity [Not Recovered/Not Resolved]

NARRATIVE: CASE EVENT DATE: 201902
